FAERS Safety Report 18189023 (Version 1)
Quarter: 2020Q3

REPORT INFORMATION
  Report Type: Spontaneous
  Country: TN (occurrence: TN)
  Receive Date: 20200824
  Receipt Date: 20200824
  Transmission Date: 20201103
  Serious: Yes (Other)
  Sender: FDA-Public Use
  Company Number: TN-SUN PHARMACEUTICAL INDUSTRIES LTD-2020RR-258413

PATIENT
  Age: 49 Year
  Sex: Female

DRUGS (4)
  1. RAMIPRIL. [Suspect]
     Active Substance: RAMIPRIL
     Indication: PRODUCT USED FOR UNKNOWN INDICATION
     Route: 065
  2. BISOPROLOL [Suspect]
     Active Substance: BISOPROLOL
     Indication: PRODUCT USED FOR UNKNOWN INDICATION
     Dosage: UNK
     Route: 065
  3. PEMETREXED. [Suspect]
     Active Substance: PEMETREXED
     Indication: LUNG ADENOCARCINOMA
     Dosage: 500 MILLIGRAM/SQ. METER
     Route: 065
  4. CARBOPLATIN. [Suspect]
     Active Substance: CARBOPLATIN
     Indication: LUNG ADENOCARCINOMA
     Dosage: 500 MILLIGRAM/SQ. METER, AUC 5
     Route: 065

REACTIONS (4)
  - Myocarditis [Not Recovered/Not Resolved]
  - Acute kidney injury [Recovering/Resolving]
  - Drug ineffective [Unknown]
  - Circulatory collapse [Not Recovered/Not Resolved]
